FAERS Safety Report 9694581 (Version 1)
Quarter: 2013Q4

REPORT INFORMATION
  Report Type: Spontaneous
  Country: AU (occurrence: AU)
  Receive Date: 20131118
  Receipt Date: 20131118
  Transmission Date: 20140711
  Serious: Yes (Other)
  Sender: FDA-Public Use
  Company Number: AU-ABBVIE-13P-008-1158249-00

PATIENT
  Sex: Female

DRUGS (2)
  1. EPILIM [Suspect]
     Indication: PRODUCT USED FOR UNKNOWN INDICATION
  2. CLOZAPINE [Suspect]
     Indication: PRODUCT USED FOR UNKNOWN INDICATION
     Route: 065

REACTIONS (13)
  - Electrocardiogram ST segment depression [Unknown]
  - Electrocardiogram T wave inversion [Unknown]
  - Myocarditis [Unknown]
  - Cardiac failure [Unknown]
  - Chest pain [Unknown]
  - Electrocardiogram abnormal [Unknown]
  - C-reactive protein increased [Unknown]
  - Cyanosis [Unknown]
  - Dyspnoea [Unknown]
  - Ejection fraction decreased [Unknown]
  - Pyrexia [Unknown]
  - Red blood cell sedimentation rate increased [Unknown]
  - Tachycardia [Unknown]
